FAERS Safety Report 8607638-6 (Version None)
Quarter: 2012Q3

REPORT INFORMATION
  Report Type: 
  Country: None (occurrence: None)
  Receive Date: 20120821
  Receipt Date: 20120807
  Transmission Date: 20120928
  Serious: Yes (Death, Other)
  Sender: FDA-Public Use
  Company Number: BR-RANBAXY-2012R5-59139

PATIENT
  Sex: Female
  Weight: 62 kg

DRUGS (3)
  1. OXCARBAZEPINE [Suspect]
     Indication: AFFECTIVE DISORDER
     Dosage: 300 MG, BID
     Route: 048
     Dates: start: 20120730, end: 20120804
  2. OXCARBAZEPINE [Suspect]
     Dosage: 300 MG, BID
     Route: 048
     Dates: start: 20120807
  3. BACLOFEN [Concomitant]
     Indication: PRODUCT USED FOR UNKNOWN INDICATION
     Dosage: 2 TABLETS, BID
     Route: 065

REACTIONS (2)
  - RASH [None]
  - SKIN EXFOLIATION [None]
